FAERS Safety Report 23039373 (Version 1)
Quarter: 2023Q4

REPORT INFORMATION
  Report Type: Spontaneous
  Country: US (occurrence: None)
  Receive Date: 20231006
  Receipt Date: 20231006
  Transmission Date: 20240109
  Serious: No
  Sender: FDA-Public Use
  Company Number: None

PATIENT
  Age: 44 Year
  Sex: Female

DRUGS (12)
  1. FASENRA [Suspect]
     Active Substance: BENRALIZUMAB
     Indication: Asthma
     Dosage: OTHER QUANTITY : 1 PEN;?OTHER FREQUENCY : EVERY 28 DAYS;?
     Route: 058
     Dates: start: 202307, end: 202310
  2. AMLODIPINE [Concomitant]
  3. MONTELUKAST [Concomitant]
     Active Substance: MONTELUKAST SODIUM
  4. PANTOPRAZOLE [Concomitant]
     Active Substance: PANTOPRAZOLE
  5. PREDNISONE [Concomitant]
  6. FAMOTIDINE [Concomitant]
  7. MAGNESIUM OXIDE [Concomitant]
     Active Substance: MAGNESIUM OXIDE
  8. NURTEC ODT [Concomitant]
     Active Substance: RIMEGEPANT SULFATE
  9. VITAMIN B12 [Concomitant]
     Active Substance: CYANOCOBALAMIN
  10. ALBUTEROL [Concomitant]
     Active Substance: ALBUTEROL
  11. ADVAIR HFA [Concomitant]
     Active Substance: FLUTICASONE PROPIONATE\SALMETEROL XINAFOATE
  12. WELLBUTRIN [Concomitant]

REACTIONS (1)
  - Drug ineffective [None]

NARRATIVE: CASE EVENT DATE: 20231006
